FAERS Safety Report 21026074 (Version 2)
Quarter: 2024Q3

REPORT INFORMATION
  Report Type: Spontaneous
  Country: US (occurrence: US)
  Receive Date: 20220630
  Receipt Date: 20240708
  Transmission Date: 20241016
  Serious: Yes (Hospitalization, Other)
  Sender: BRISTOL MYERS SQUIBB
  Company Number: US-BRISTOL-MYERS SQUIBB COMPANY-2022-061504

PATIENT
  Age: 22 Year
  Sex: Female

DRUGS (1)
  1. NIVOLUMAB [Suspect]
     Active Substance: NIVOLUMAB
     Indication: Osteosarcoma metastatic
     Dosage: TOTAL OF SIX DOSES (480 MILLIGRAMS/DOSE)

REACTIONS (2)
  - Immune-mediated hepatitis [Recovering/Resolving]
  - Off label use [Unknown]
